FAERS Safety Report 6860298-7 (Version None)
Quarter: 2010Q3

REPORT INFORMATION
  Report Type: 
  Country: None (occurrence: None)
  Receive Date: 20100719
  Receipt Date: 20100719
  Transmission Date: 20110219
  Serious: Yes (Life-Threatening, Hospitalization)
  Sender: FDA-Public Use
  Company Number: None

PATIENT
  Age: 85 Year
  Sex: Male
  Weight: 96.62 kg

DRUGS (3)
  1. NAPROXEN [Suspect]
     Indication: PAIN
     Dosage: 250 MG BID PO
     Route: 048
     Dates: start: 20090529
  2. ASPIRIN [Suspect]
     Indication: AORTIC ANEURYSM
     Dosage: 81 MG EVERY DAY PO
     Route: 048
     Dates: start: 20090529, end: 20100603
  3. ASPIRIN [Suspect]
     Indication: CEREBROVASCULAR ACCIDENT
     Dosage: 81 MG EVERY DAY PO
     Route: 048
     Dates: start: 20090529, end: 20100603

REACTIONS (1)
  - UPPER GASTROINTESTINAL HAEMORRHAGE [None]
